FAERS Safety Report 24193049 (Version 1)
Quarter: 2024Q3

REPORT INFORMATION
  Report Type: Other
  Country: US (occurrence: US)
  Receive Date: 20240809
  Receipt Date: 20240809
  Transmission Date: 20241016
  Serious: No
  Sender: WOODWARD PHARMA SERVICES
  Company Number: US-WW-2024-e02026P1

PATIENT
  Age: 13 Year
  Sex: Male

DRUGS (5)
  1. FLUCONAZOLE [Suspect]
     Active Substance: FLUCONAZOLE
     Indication: Coccidioidomycosis
     Dosage: 400 MG, QD
     Route: 048
  2. FLUCONAZOLE [Suspect]
     Active Substance: FLUCONAZOLE
     Indication: Coccidioidomycosis
     Dosage: 400 MG, QD
     Route: 065
  3. FLUCONAZOLE [Suspect]
     Active Substance: FLUCONAZOLE
     Indication: Coccidioidomycosis
     Dosage: 200 MG, QD
     Route: 065
  4. TACROLIMUS [Concomitant]
     Active Substance: TACROLIMUS
  5. CEPHALEXIN [Concomitant]
     Active Substance: CEPHALEXIN
     Route: 048

REACTIONS (2)
  - Dry skin [Unknown]
  - Paronychia [Recovered/Resolved]
